FAERS Safety Report 11612272 (Version 1)
Quarter: 2015Q4

REPORT INFORMATION
  Report Type: Spontaneous
  Country: US (occurrence: US)
  Receive Date: 20151008
  Receipt Date: 20151008
  Transmission Date: 20160304
  Serious: Yes (Other)
  Sender: FDA-Public Use
  Company Number: US-JNJFOC-20150907574

PATIENT
  Age: 13 Year
  Sex: Female
  Weight: 61.69 kg

DRUGS (1)
  1. SUDAFED PE PRESSURE PLUS PAIN PLUS COLD [Suspect]
     Active Substance: ACETAMINOPHEN\DEXTROMETHORPHAN HYDROBROMIDE\GUAIFENESIN\PHENYLEPHRINE HYDROCHLORIDE
     Indication: SUICIDE ATTEMPT
     Dosage: 8 TO 10 CAPLETS ONCE
     Route: 048
     Dates: start: 20150909, end: 20150909

REACTIONS (1)
  - Extra dose administered [Recovered/Resolved]

NARRATIVE: CASE EVENT DATE: 20150909
